FAERS Safety Report 4556282-9 (Version None)
Quarter: 2005Q1

REPORT INFORMATION
  Report Type: 
  Country: None (occurrence: None)
  Receive Date: 20050103
  Receipt Date: 20040817
  Transmission Date: 20050727
  Serious: Yes (Other)
  Sender: FDA-Public Use
  Company Number: 2004UW17468

PATIENT
  Age: 83 Year
  Sex: Female
  Weight: 48.5349 kg

DRUGS (5)
  1. CRESTOR [Suspect]
     Indication: BLOOD CHOLESTEROL INCREASED
     Dosage: 10 MG PO
     Route: 048
     Dates: start: 20040618
  2. DIOVAN [Concomitant]
  3. PLAVIX [Concomitant]
  4. TYLENOL [Concomitant]
  5. REMERON [Concomitant]

REACTIONS (2)
  - ARTHRITIS [None]
  - CYSTITIS [None]
